FAERS Safety Report 14568438 (Version 1)
Quarter: 2018Q1

REPORT INFORMATION
  Report Type: Other
  Country: US (occurrence: US)
  Receive Date: 20180223
  Receipt Date: 20180223
  Transmission Date: 20180509
  Serious: No
  Sender: FDA-Public Use
  Company Number: US-OSMOTICA_PHARMACEUTICAL_US_LLC-POI0573201700087

PATIENT
  Age: 33 Year
  Sex: Female
  Weight: 74.91 kg

DRUGS (9)
  1. MELOXICAM. [Concomitant]
     Active Substance: MELOXICAM
     Indication: JOINT INJURY
  2. PAROXETINE. [Concomitant]
     Active Substance: PAROXETINE
     Indication: ANXIETY
  3. LISINOPRIL. [Concomitant]
     Active Substance: LISINOPRIL
     Indication: HEART DISEASE CONGENITAL
  4. THORAZINE [Concomitant]
     Active Substance: CHLORPROMAZINE
     Indication: ANXIETY
  5. METHYLPHENIDATE HYDROCHLORIDE EXTENDED-RELEASE TABLETS [Suspect]
     Active Substance: METHYLPHENIDATE HYDROCHLORIDE
     Indication: ATTENTION DEFICIT/HYPERACTIVITY DISORDER
     Dates: start: 201710, end: 20171211
  6. NEURONTIN [Concomitant]
     Active Substance: GABAPENTIN
     Indication: MIGRAINE
  7. METHYLPHENIDATE HYDROCHLORIDE EXTENDED-RELEASE TABLETS [Suspect]
     Active Substance: METHYLPHENIDATE HYDROCHLORIDE
     Dates: start: 20171212
  8. PROPRANOLOL [Concomitant]
     Active Substance: PROPRANOLOL HYDROCHLORIDE
     Indication: ANXIETY
  9. WELLBUTRIN [Concomitant]
     Active Substance: BUPROPION HYDROCHLORIDE
     Indication: SMOKING CESSATION THERAPY

REACTIONS (2)
  - Anxiety [Not Recovered/Not Resolved]
  - Drug ineffective [Not Recovered/Not Resolved]

NARRATIVE: CASE EVENT DATE: 201710
